FAERS Safety Report 25133415 (Version 2)
Quarter: 2025Q3

REPORT INFORMATION
  Report Type: Report from Study
  Country: BR (occurrence: BR)
  Receive Date: 20250328
  Receipt Date: 20250809
  Transmission Date: 20251020
  Serious: Yes (Hospitalization)
  Sender: ALEXION PHARMACEUTICALS
  Company Number: BR-ASTRAZENECA-202503SAM021746BR

PATIENT
  Sex: Female
  Weight: 62 kg

DRUGS (6)
  1. BENRALIZUMAB [Suspect]
     Active Substance: BENRALIZUMAB
     Indication: Asthma
     Dosage: 30 MILLIGRAM, Q8W
     Dates: start: 202102
  2. Tramal Ir [Concomitant]
     Route: 065
  3. Dipirona apolo [Concomitant]
     Route: 065
  4. Dramamine ii [Concomitant]
     Route: 065
  5. DECADRON [Concomitant]
     Active Substance: DEXAMETHASONE
     Route: 065
  6. VALPROATE [Concomitant]
     Active Substance: VALPROIC ACID
     Route: 065

REACTIONS (8)
  - Migraine [Unknown]
  - Headache [Not Recovered/Not Resolved]
  - Dry mouth [Recovered/Resolved]
  - Amnesia [Recovered/Resolved]
  - Headache [Recovered/Resolved]
  - Unevaluable event [Recovered/Resolved]
  - Insomnia [Unknown]
  - Nausea [Unknown]
